FAERS Safety Report 5443658-0 (Version None)
Quarter: 2007Q3

REPORT INFORMATION
  Report Type: 
  Country: None (occurrence: None)
  Receive Date: 20070905
  Receipt Date: 20070903
  Transmission Date: 20080115
  Serious: Yes (Life-Threatening)
  Sender: FDA-Public Use
  Company Number: AUWYE249703SEP07

PATIENT
  Sex: Male
  Weight: 72 kg

DRUGS (5)
  1. RAPAMUNE [Suspect]
     Dosage: 1 MG DAILY
     Route: 048
     Dates: end: 20060919
  2. CALTRATE [Concomitant]
  3. HYOSCINE [Concomitant]
  4. DILTIAZEM [Concomitant]
  5. DOXYCYCLINE HYDROCHLORIDE [Concomitant]

REACTIONS (4)
  - DYSPNOEA [None]
  - LUNG INFILTRATION [None]
  - PULMONARY FUNCTION TEST DECREASED [None]
  - PYREXIA [None]
